FAERS Safety Report 20478547 (Version 1)
Quarter: 2022Q1

REPORT INFORMATION
  Report Type: Spontaneous
  Country: SG (occurrence: SG)
  Receive Date: 20220216
  Receipt Date: 20220216
  Transmission Date: 20220423
  Serious: Yes (Other)
  Sender: FDA-Public Use
  Company Number: SG-SA-SAC20220211001040

PATIENT
  Age: 23 Year
  Sex: Female

DRUGS (1)
  1. LEFLUNOMIDE [Suspect]
     Active Substance: LEFLUNOMIDE

REACTIONS (2)
  - Rash maculo-papular [Unknown]
  - Lip swelling [Unknown]

NARRATIVE: CASE EVENT DATE: 20211227
